FAERS Safety Report 12500671 (Version 1)
Quarter: 2016Q2

REPORT INFORMATION
  Report Type: Spontaneous
  Country: FR (occurrence: FR)
  Receive Date: 20160627
  Receipt Date: 20160627
  Transmission Date: 20160815
  Serious: Yes (Other)
  Sender: FDA-Public Use
  Company Number: FR-PFIZER INC-2016310922

PATIENT
  Age: 67 Year
  Sex: Female

DRUGS (10)
  1. MYCOPHENOLATE MOFETIL HYDROCHLORIDE [Suspect]
     Active Substance: MYCOPHENOLATE MOFETIL HYDROCHLORIDE
     Indication: PROPHYLAXIS
     Dosage: 15 MG/KG, 3X/DAY
     Route: 048
     Dates: start: 20160424
  2. THIOTEPA. [Suspect]
     Active Substance: THIOTEPA
     Indication: PROPHYLAXIS
     Dosage: 100 MG/KG, 1X/DAY
     Route: 042
     Dates: start: 20160413, end: 20160417
  3. ZELITREX [Suspect]
     Active Substance: VALACYCLOVIR HYDROCHLORIDE
     Indication: PROPHYLAXIS
     Dosage: 500 MG, 2X/DAY
     Route: 048
     Dates: start: 20160413
  4. TRIFLUCAN [Suspect]
     Active Substance: FLUCONAZOLE
     Indication: PROPHYLAXIS
     Dosage: 400 MG, 1X/DAY
     Route: 048
     Dates: start: 20160420
  5. BACTRIM DS [Suspect]
     Active Substance: SULFAMETHOXAZOLE\TRIMETHOPRIM
     Indication: PROPHYLAXIS
     Dosage: UNK
     Route: 048
     Dates: start: 201604
  6. INEXIUM [Suspect]
     Active Substance: ESOMEPRAZOLE
     Indication: PROPHYLAXIS
     Route: 048
  7. FLUDARABINE PHOSPHATE. [Suspect]
     Active Substance: FLUDARABINE PHOSPHATE
     Indication: PROPHYLAXIS
     Dosage: UNK
     Route: 048
     Dates: start: 20160413
  8. NEORAL [Suspect]
     Active Substance: CYCLOSPORINE
     Indication: PROPHYLAXIS
     Dosage: 3 MG/KG, DAILY
     Route: 048
     Dates: start: 20160424
  9. ENDOXAN [Suspect]
     Active Substance: CYCLOPHOSPHAMIDE
     Indication: PROPHYLAXIS
     Dosage: UNK
     Route: 042
     Dates: start: 20160422, end: 20160423
  10. CLAMOXYL [Suspect]
     Active Substance: AMOXICILLIN\CLAVULANIC ACID
     Indication: PROPHYLAXIS
     Dosage: 500 MG, 2X/DAY
     Route: 048
     Dates: start: 201605

REACTIONS (3)
  - Pyrexia [Recovered/Resolved]
  - Rash [Recovered/Resolved]
  - Visual field defect [Recovered/Resolved]

NARRATIVE: CASE EVENT DATE: 20160510
